FAERS Safety Report 8456894-6 (Version None)
Quarter: 2012Q2

REPORT INFORMATION
  Report Type: 
  Country: None (occurrence: None)
  Receive Date: 20120323
  Receipt Date: 20111102
  Transmission Date: 20120825
  Serious: Yes (Disabling, Other)
  Sender: FDA-Public Use
  Company Number: 163-21880-11092078

PATIENT
  Age: 58 Year
  Sex: Female
  Weight: 72.5755 kg

DRUGS (20)
  1. FLAX OIL (LINSEED OIL) [Concomitant]
  2. FOLIC ACID [Concomitant]
  3. DEXAMETHASONE (DEXAMETHASONE) [Concomitant]
  4. STOOL SOFTENER (DOCUSATE SODIUM) [Concomitant]
  5. REVLIMID [Suspect]
     Indication: MULTIPLE MYELOMA
     Dosage: SEE IMAGE
     Route: 048
     Dates: start: 20110705
  6. REVLIMID [Suspect]
     Indication: MULTIPLE MYELOMA
     Dosage: SEE IMAGE
     Route: 048
     Dates: start: 20110723
  7. REVLIMID [Suspect]
     Indication: MULTIPLE MYELOMA
     Dosage: SEE IMAGE
     Route: 048
     Dates: start: 20111018
  8. REVLIMID [Suspect]
     Indication: MULTIPLE MYELOMA
     Dosage: SEE IMAGE
     Route: 048
     Dates: start: 20110630
  9. REVLIMID [Suspect]
     Indication: MULTIPLE MYELOMA
     Dosage: SEE IMAGE
     Route: 048
     Dates: start: 20110902
  10. VELCADE [Concomitant]
  11. B COMPLEX ELX [Concomitant]
  12. ASPIRIN [Concomitant]
  13. MULTIPLE VITAMINS (MULTIPLE VITAMINS) [Concomitant]
  14. ACYCLOVIR [Concomitant]
  15. ALPRAZOLAM [Concomitant]
  16. LASIX [Concomitant]
  17. LORAZEPAM [Concomitant]
  18. BIFIDUS (LACTOBACILLUS BIFIDUS) [Concomitant]
  19. EMLA (EMLA) [Concomitant]
  20. ONDANSETRON [Concomitant]

REACTIONS (2)
  - ANAEMIA [None]
  - RENAL FAILURE ACUTE [None]
